FAERS Safety Report 10073933 (Version 2)
Quarter: 2014Q2

REPORT INFORMATION
  Report Type: Spontaneous
  Country: MY (occurrence: MY)
  Receive Date: 20140411
  Receipt Date: 20140428
  Transmission Date: 20141212
  Serious: Yes (Disabling, Other)
  Sender: FDA-Public Use
  Company Number: MY-ABBVIE-14P-101-1220654-00

PATIENT
  Age: 50 Year
  Sex: Male

DRUGS (1)
  1. HUMIRA [Suspect]
     Indication: PSORIATIC ARTHROPATHY
     Dates: end: 201402

REACTIONS (4)
  - Pain [Recovering/Resolving]
  - Pain [Unknown]
  - Fall [Unknown]
  - Balance disorder [Unknown]
